FAERS Safety Report 6190881-6 (Version None)
Quarter: 2009Q2

REPORT INFORMATION
  Report Type: 
  Country: None (occurrence: None)
  Receive Date: 20090514
  Receipt Date: 20090429
  Transmission Date: 20091009
  Serious: Yes (Hospitalization)
  Sender: FDA-Public Use
  Company Number: ES-ABBOTT-09P-144-0573398-00

PATIENT
  Age: 70 Year
  Sex: Female

DRUGS (3)
  1. AKINETON [Suspect]
     Indication: CARDIOVASCULAR DISORDER
     Route: 042
     Dates: start: 20090406, end: 20090406
  2. POLIBUTIN [Suspect]
     Indication: ABDOMINAL PAIN UPPER
     Route: 048
     Dates: start: 20090405, end: 20090405
  3. TRAMADOL [Concomitant]
     Indication: DRUG USE FOR UNKNOWN INDICATION
     Route: 048
     Dates: start: 20090323

REACTIONS (4)
  - APHASIA [None]
  - CONFUSIONAL STATE [None]
  - DRUG TOXICITY [None]
  - PSYCHOMOTOR HYPERACTIVITY [None]
